FAERS Safety Report 8871114 (Version 1)
Quarter: 2012Q4

REPORT INFORMATION
  Report Type: 
  Country: US (occurrence: US)
  Receive Date: 20121026
  Receipt Date: 20121026
  Transmission Date: 20130627
  Serious: No
  Sender: FDA-Public Use
  Company Number: US-AMGEN-USASP2012044093

PATIENT
  Sex: Female

DRUGS (5)
  1. ENBREL [Suspect]
     Indication: PRODUCT USED FOR UNKNOWN INDICATION
     Dosage: 50 mg/ml, qwk
     Route: 058
  2. METHOTREXATE [Concomitant]
     Dosage: 2.5 mg, UNK
  3. FOLIC ACID [Concomitant]
     Dosage: 88 mug, UNK
  4. VITAMIN D /00107901/ [Concomitant]
     Dosage: 400 unit, UNK
  5. SYNTHROID [Concomitant]
     Dosage: 88 mug, UNK

REACTIONS (1)
  - Sinusitis [Recovered/Resolved]
